FAERS Safety Report 26009474 (Version 1)
Quarter: 2025Q4

REPORT INFORMATION
  Report Type: Spontaneous
  Country: US (occurrence: US)
  Receive Date: 20251107
  Receipt Date: 20251107
  Transmission Date: 20260117
  Serious: No
  Sender: Haleon PLC
  Company Number: US-HALEON-2272456

PATIENT
  Age: 71 Year
  Sex: Female

DRUGS (2)
  1. NICORETTE WHITE ICE MINT [Suspect]
     Active Substance: NICOTINE
     Indication: Smoking cessation therapy
     Dates: start: 20251102, end: 20251103
  2. NICORETTE WHITE ICE MINT [Suspect]
     Active Substance: NICOTINE
     Dates: start: 20251102, end: 20251103

REACTIONS (2)
  - Blood glucose increased [Unknown]
  - Oral discomfort [Unknown]

NARRATIVE: CASE EVENT DATE: 20251103
